FAERS Safety Report 9100519 (Version 1)
Quarter: 2013Q1

REPORT INFORMATION
  Report Type: Spontaneous
  Country: US (occurrence: US)
  Receive Date: 20130215
  Receipt Date: 20130215
  Transmission Date: 20140127
  Serious: No
  Sender: FDA-Public Use
  Company Number: US-ASTRAZENECA-2013SE09092

PATIENT
  Age: 60 Year
  Sex: Female
  Weight: 106.6 kg

DRUGS (20)
  1. SYMBICORT PMDI [Suspect]
     Indication: ASTHMA
     Dosage: 1 PUFF, TWO TIMES A DAY
     Route: 055
  2. METOPROLOL SUCCINATE [Suspect]
     Indication: BLOOD PRESSURE ABNORMAL
     Route: 048
  3. PRILOSEC [Suspect]
     Indication: GASTROOESOPHAGEAL REFLUX DISEASE
     Route: 048
  4. BRILINTA [Suspect]
     Indication: STENT PLACEMENT
     Route: 048
     Dates: start: 20120907
  5. ALBUTEROL [Concomitant]
     Indication: ASTHMA
     Dosage: 2 PUFFS, EVERY 6 HOURS AS REQUIRED
     Route: 055
  6. WELLBUTRIN ER [Concomitant]
     Indication: DEPRESSION
     Route: 048
  7. METFORMIN [Concomitant]
     Indication: DIABETES MELLITUS
     Route: 048
  8. ARTHROTEC [Concomitant]
     Indication: ARTHRITIS
     Route: 048
  9. SIMVISTATIN [Concomitant]
     Indication: BLOOD CHOLESTEROL INCREASED
     Route: 048
  10. HYDROCHLOROTHIAZIDE [Concomitant]
     Indication: DIURETIC THERAPY
     Route: 048
  11. FLAX OIL [Concomitant]
     Indication: ARTERIOSCLEROSIS
     Route: 048
  12. ASPIRIN [Concomitant]
     Route: 048
  13. CALTRATE WITH VITAMIN D [Concomitant]
     Indication: BONE DISORDER
     Route: 048
  14. CINNAMON CAPS [Concomitant]
     Indication: BLOOD GLUCOSE ABNORMAL
     Route: 048
  15. MENOPAUSE ESSENTIALS [Concomitant]
     Indication: MENOPAUSE
     Route: 048
  16. POTASSIUM GLUCONATE [Concomitant]
     Indication: MUSCLE SPASMS
     Route: 048
  17. CO Q 10 [Concomitant]
     Indication: CARDIAC DISORDER
     Route: 048
  18. GLUCOSAMINE CHONDROITIN MSM [Concomitant]
     Indication: ARTHROPATHY
     Route: 048
  19. CHEWABLE VITAMIN C [Concomitant]
     Indication: VITAMIN SUPPLEMENTATION
     Route: 048
  20. MULTIVITAMIN [Concomitant]
     Indication: VITAMIN SUPPLEMENTATION
     Route: 048

REACTIONS (2)
  - Contusion [Unknown]
  - Dyspnoea [Unknown]
